FAERS Safety Report 12130008 (Version 1)
Quarter: 2016Q1

REPORT INFORMATION
  Report Type: Other
  Country: US (occurrence: US)
  Receive Date: 20160229
  Receipt Date: 20160229
  Transmission Date: 20160526
  Serious: No
  Sender: FDA-Public Use
  Company Number: US-ACORDA-ACO_22925_2010

PATIENT
  Age: 60 Year
  Sex: Female
  Weight: 51 kg

DRUGS (18)
  1. CYMBALTA [Concomitant]
     Active Substance: DULOXETINE HYDROCHLORIDE
  2. MIRALAX [Concomitant]
     Active Substance: POLYETHYLENE GLYCOL 3350
     Indication: CONSTIPATION
     Dosage: DF AS NEEDED
  3. LEVOTHYROXINE. [Concomitant]
     Active Substance: LEVOTHYROXINE
  4. FERROUS SULFATE [Concomitant]
     Active Substance: FERROUS SULFATE\FERROUS SULFATE, DRIED
     Dosage: DF
  5. GLUCOSAMINE [Concomitant]
     Active Substance: GLUCOSAMINE
     Dosage: DF
  6. WELLBUTRIN SR [Concomitant]
     Active Substance: BUPROPION HYDROCHLORIDE
  7. ADDERALL [Concomitant]
     Active Substance: AMPHETAMINE ASPARTATE\AMPHETAMINE SULFATE\DEXTROAMPHETAMINE SACCHARATE\DEXTROAMPHETAMINE SULFATE
  8. KLONOPIN [Concomitant]
     Active Substance: CLONAZEPAM
     Dosage: AT NAP TIME AND AT BEDTIME
  9. CYTOMEL [Concomitant]
     Active Substance: LIOTHYRONINE SODIUM
     Dosage: DF
  10. ARICEPT [Concomitant]
     Active Substance: DONEPEZIL HYDROCHLORIDE
  11. TRAZODONE [Concomitant]
     Active Substance: TRAZODONE HYDROCHLORIDE
     Dosage: AT NAP TIME AND AT BEDTIME
  12. FORTEO [Concomitant]
     Active Substance: TERIPARATIDE
     Dosage: DF
     Route: 058
  13. NAPROXEN. [Concomitant]
     Active Substance: NAPROXEN
  14. BABY ASPIRIN [Concomitant]
     Active Substance: ASPIRIN
  15. AMPYRA [Suspect]
     Active Substance: DALFAMPRIDINE
     Indication: MULTIPLE SCLEROSIS
     Dosage: 10 MG, BID
     Route: 048
     Dates: start: 20100515, end: 2010
  16. AMPYRA [Suspect]
     Active Substance: DALFAMPRIDINE
     Dosage: 10 MG, Q 12 HRS
     Route: 048
     Dates: start: 2010, end: 201010
  17. FISH OIL [Concomitant]
     Active Substance: FISH OIL
  18. MULTIVITAMIN [Concomitant]
     Active Substance: VITAMINS
     Dosage: DF

REACTIONS (4)
  - Cough [Recovering/Resolving]
  - Dizziness [Recovered/Resolved]
  - Reading disorder [Not Recovered/Not Resolved]
  - Therapy cessation [Unknown]

NARRATIVE: CASE EVENT DATE: 2010
